FAERS Safety Report 9204288 (Version 2)
Quarter: 2013Q2

REPORT INFORMATION
  Report Type: Spontaneous
  Country: US (occurrence: US)
  Receive Date: 20130402
  Receipt Date: 20130513
  Transmission Date: 20140414
  Serious: Yes (Other)
  Sender: FDA-Public Use
  Company Number: US-PFIZER INC-2013104071

PATIENT
  Sex: Male

DRUGS (2)
  1. LYRICA [Suspect]
     Indication: POST HERPETIC NEURALGIA
     Dosage: 150 MG, 1X/DAY
     Route: 048
  2. LYRICA [Suspect]
     Dosage: 225 MG, 1X/DAY
     Route: 048

REACTIONS (6)
  - Dyspnoea [Recovered/Resolved]
  - Neurological symptom [Unknown]
  - Renal impairment [Unknown]
  - Creatinine renal clearance decreased [Unknown]
  - Headache [Unknown]
  - Dizziness [Unknown]
